FAERS Safety Report 4993240-4 (Version None)
Quarter: 2006Q1

REPORT INFORMATION
  Report Type: 
  Country: None (occurrence: None)
  Receive Date: 20060314
  Receipt Date: 20050218
  Transmission Date: 20060701
  Serious: Yes (Other)
  Sender: FDA-Public Use
  Company Number: 200510534BCC

PATIENT
  Age: 43 Year
  Sex: Female
  Weight: 79.3795 kg

DRUGS (5)
  1. ALEVE [Suspect]
     Indication: HEADACHE
     Dosage: SEE IMAGE
     Route: 048
  2. ALEVE [Suspect]
     Indication: HEADACHE
     Dosage: SEE IMAGE
     Route: 048
     Dates: start: 20050204
  3. ALEVE [Suspect]
     Indication: HEADACHE
     Dosage: SEE IMAGE
     Route: 048
     Dates: start: 20050205
  4. ALEVE [Suspect]
     Indication: HEADACHE
     Dosage: SEE IMAGE
     Route: 048
     Dates: start: 20050206
  5. DIOVAN [Concomitant]

REACTIONS (1)
  - HAEMATOCHEZIA [None]
